FAERS Safety Report 6126764-7 (Version None)
Quarter: 2009Q1

REPORT INFORMATION
  Report Type: 
  Country: None (occurrence: None)
  Receive Date: 20090320
  Receipt Date: 20090312
  Transmission Date: 20090719
  Serious: Yes (Life-Threatening, Hospitalization, Disabling)
  Sender: FDA-Public Use
  Company Number: US-JNJFOC-20090102496

PATIENT
  Sex: Female
  Weight: 52.62 kg

DRUGS (8)
  1. FENTANYL-25 [Suspect]
     Indication: PAIN
     Route: 062
  2. VICOPROFEN [Suspect]
     Indication: PAIN
  3. DILAUDID [Suspect]
     Indication: PAIN
  4. MORPHINE [Suspect]
     Indication: PAIN
     Route: 042
  5. OXYLR [Suspect]
     Route: 048
  6. OXYLR [Suspect]
     Route: 048
  7. OXYLR [Suspect]
     Indication: PAIN
     Route: 048
  8. VALIUM [Suspect]
     Indication: ANXIETY
     Route: 048

REACTIONS (5)
  - ANOXIC ENCEPHALOPATHY [None]
  - CLOSTRIDIAL INFECTION [None]
  - MULTI-ORGAN FAILURE [None]
  - OVERDOSE [None]
  - RHABDOMYOLYSIS [None]
